FAERS Safety Report 5627069-0 (Version None)
Quarter: 2008Q1

REPORT INFORMATION
  Report Type: 
  Country: None (occurrence: None)
  Receive Date: 20080116
  Receipt Date: 20061214
  Transmission Date: 20080703
  Serious: Yes (Other)
  Sender: FDA-Public Use
  Company Number: PHEH2006US15302

PATIENT
  Age: 40 Year
  Sex: Male
  Weight: 53.5 kg

DRUGS (7)
  1. LIORESAL [Suspect]
     Dosage: TABLETS, ORAL ; ^HALF OF ORIGINAL DOSE^
     Route: 048
  2. FENTANYL [Suspect]
     Indication: HEADACHE
     Dosage: SEE IMAGE
     Route: 062
     Dates: start: 20060101
  3. FENTANYL [Suspect]
     Indication: HEADACHE
     Dosage: SEE IMAGE
     Route: 062
     Dates: start: 20060101
  4. FENTANYL [Suspect]
     Indication: HEADACHE
     Dosage: SEE IMAGE
     Route: 062
     Dates: start: 20060801
  5. FENTANYL [Suspect]
     Indication: HEADACHE
     Dosage: SEE IMAGE
     Route: 062
     Dates: start: 20061108
  6. CYMBALTA [Suspect]
     Indication: DEPRESSION
     Dosage: 20 MG, 2 IN ONE DAY, ORAL
     Route: 048
     Dates: start: 20061101
  7. ALPRAZOLAM [Suspect]
     Indication: VERTIGO
     Dosage: ORAL
     Route: 048
     Dates: start: 20061101

REACTIONS (5)
  - DEPRESSION [None]
  - DYSKINESIA [None]
  - HYPERSOMNIA [None]
  - PAIN [None]
  - PARAESTHESIA [None]
